FAERS Safety Report 16465674 (Version 1)
Quarter: 2019Q2

REPORT INFORMATION
  Report Type: Spontaneous
  Country: US (occurrence: US)
  Receive Date: 20190621
  Receipt Date: 20190621
  Transmission Date: 20190711
  Serious: No
  Sender: FDA-Public Use
  Company Number: US-TARO-2018TAR00734

PATIENT
  Age: 9 Year
  Sex: Male
  Weight: 24.94 kg

DRUGS (2)
  1. FLINTSTONE CHEWABLE VITAMINS [Concomitant]
     Dosage: UNK, 1X/DAY IN THE MORNING
     Route: 048
  2. CETIRIZINE HCL [Suspect]
     Active Substance: CETIRIZINE HYDROCHLORIDE
     Indication: SEASONAL ALLERGY
     Dosage: 10 MG, ONCE
     Route: 048
     Dates: start: 20181004, end: 20181004

REACTIONS (2)
  - Vomiting [Recovered/Resolved]
  - Product quality issue [Recovered/Resolved]

NARRATIVE: CASE EVENT DATE: 20181004
